FAERS Safety Report 9911603 (Version 2)
Quarter: 2014Q1

REPORT INFORMATION
  Report Type: Spontaneous
  Country: JP (occurrence: JP)
  Receive Date: 20140219
  Receipt Date: 20140219
  Transmission Date: 20141002
  Serious: Yes (Hospitalization, Other)
  Sender: FDA-Public Use
  Company Number: PHHY2012JP075290

PATIENT
  Age: 42 Year
  Sex: Male
  Weight: 73 kg

DRUGS (18)
  1. NEORAL [Suspect]
     Indication: MYASTHENIA GRAVIS
     Dosage: 200 MG, QD
     Route: 048
     Dates: start: 20080409
  2. NEORAL [Suspect]
     Dosage: 250 MG, QD
     Route: 048
     Dates: start: 20090807
  3. NEORAL [Suspect]
     Dosage: 300 MG, QD
     Route: 048
     Dates: start: 20100326
  4. NEORAL [Suspect]
     Dosage: 350 MG, QD
     Route: 048
     Dates: start: 20101022
  5. NEORAL [Suspect]
     Dosage: 300 MG, QD
     Route: 048
     Dates: start: 20110225
  6. NEORAL [Suspect]
     Dosage: 275 MG, QD
     Route: 048
     Dates: start: 20110408
  7. NEORAL [Suspect]
     Dosage: 250 MG, QD
     Route: 048
     Dates: start: 20110624, end: 20120919
  8. NEORAL [Suspect]
     Dosage: 250 MG, UNK
     Route: 048
     Dates: start: 200807, end: 20120829
  9. PREDNISOLONE [Suspect]
     Indication: MYASTHENIA GRAVIS
  10. CORTICOSTEROID NOS [Concomitant]
  11. SLOW K [Concomitant]
     Dosage: 1200 MG, UNK
     Route: 048
  12. MYTELASE [Concomitant]
     Dosage: 5 MG, UNK
     Route: 048
  13. TAKEPRON [Concomitant]
     Dosage: 30 MG, UNK
     Route: 048
  14. DOXORUBICIN [Concomitant]
  15. VINCRISTINE [Concomitant]
  16. RITUXIMAB [Concomitant]
  17. CYCLOPHOSPHAMIDE [Concomitant]
  18. PREDNISONE [Concomitant]
     Indication: MYASTHENIA GRAVIS

REACTIONS (15)
  - Burkitt^s lymphoma [Recovering/Resolving]
  - Lymph node pain [Unknown]
  - Lymphadenopathy [Unknown]
  - Pyrexia [Unknown]
  - Neck pain [Unknown]
  - Diffuse large B-cell lymphoma [Unknown]
  - Local swelling [Unknown]
  - Epstein-Barr virus infection [Unknown]
  - Epstein-Barr virus antigen positive [Unknown]
  - Myasthenia gravis [Unknown]
  - Diplopia [Unknown]
  - Eyelid ptosis [Unknown]
  - Renal impairment [Unknown]
  - Gastric mucosal lesion [Unknown]
  - Abdominal distension [Unknown]
